FAERS Safety Report 17852037 (Version 2)
Quarter: 2020Q2

REPORT INFORMATION
  Report Type: Spontaneous
  Country: US (occurrence: US)
  Receive Date: 20200602
  Receipt Date: 20200622
  Transmission Date: 20200714
  Serious: No
  Sender: FDA-Public Use
  Company Number: US-GLAXOSMITHKLINE-US2020AMR059874

PATIENT
  Sex: Female

DRUGS (3)
  1. ZEJULA [Suspect]
     Active Substance: NIRAPARIB
     Indication: OVARIAN CANCER
     Dosage: 100 MG, QD, PM WITH FOOD
     Dates: start: 20200202
  2. ZEJULA [Suspect]
     Active Substance: NIRAPARIB
     Dosage: 100 MG, DAILY
     Dates: start: 20200331
  3. ZEJULA [Suspect]
     Active Substance: NIRAPARIB
     Dosage: 200 MG,DAILY
     Dates: start: 20200204

REACTIONS (3)
  - Constipation [Unknown]
  - Off label use [Unknown]
  - Fatigue [Unknown]
